FAERS Safety Report 6738419-6 (Version None)
Quarter: 2010Q2

REPORT INFORMATION
  Report Type: 
  Country: None (occurrence: None)
  Receive Date: 20100520
  Receipt Date: 20100512
  Transmission Date: 20101027
  Serious: Yes (Other)
  Sender: FDA-Public Use
  Company Number: 004869

PATIENT
  Sex: Male
  Weight: 70 kg

DRUGS (3)
  1. TYLEX /00547501/ (TYLEX) [Suspect]
     Indication: BACK DISORDER
     Dosage: (2 DF BID ORAL)
     Route: 048
     Dates: start: 20100111, end: 20100113
  2. TYLEX /00547501/ (TYLEX) [Suspect]
     Indication: RENAL COLIC
     Dosage: (2 DF BID ORAL)
     Route: 048
     Dates: start: 20100111, end: 20100113
  3. CO-AMOXICLAV /01000301/ [Concomitant]

REACTIONS (2)
  - FALL [None]
  - ORTHOSTATIC HYPOTENSION [None]
